FAERS Safety Report 24148032 (Version 1)
Quarter: 2024Q3

REPORT INFORMATION
  Report Type: Spontaneous
  Country: US (occurrence: None)
  Receive Date: 20240728
  Receipt Date: 20240728
  Transmission Date: 20241016
  Serious: No
  Sender: Public
  Company Number: None

PATIENT
  Age: 31 Year
  Sex: Female
  Weight: 58.5 kg

DRUGS (1)
  1. LASTACAFT [Suspect]
     Active Substance: ALCAFTADINE
     Indication: Conjunctivitis
     Dates: start: 20240701, end: 20240726

REACTIONS (3)
  - Ocular hyperaemia [None]
  - Eye pruritus [None]
  - Dry eye [None]

NARRATIVE: CASE EVENT DATE: 20240726
